FAERS Safety Report 4995580-1 (Version None)
Quarter: 2006Q2

REPORT INFORMATION
  Report Type: 
  Country: None (occurrence: None)
  Receive Date: 20060508
  Receipt Date: 20060324
  Transmission Date: 20061013
  Serious: Yes (Hospitalization)
  Sender: FDA-Public Use
  Company Number: US-ROCHE-442130

PATIENT
  Age: 15 Year
  Sex: Male
  Weight: 59 kg

DRUGS (2)
  1. ACCUTANE [Suspect]
     Indication: ACNE
     Route: 048
     Dates: start: 20051010, end: 20051110
  2. CLAVARIS [Suspect]
     Indication: ACNE
     Route: 048
     Dates: start: 20051111, end: 20060324

REACTIONS (2)
  - DEPRESSION [None]
  - SUICIDAL IDEATION [None]
